FAERS Safety Report 16680029 (Version 4)
Quarter: 2020Q2

REPORT INFORMATION
  Report Type: Report from Study
  Country: US (occurrence: US)
  Receive Date: 20190807
  Receipt Date: 20200409
  Transmission Date: 20200713
  Serious: Yes (Hospitalization)
  Sender: FDA-Public Use
  Company Number: US-ACTELION-A-NJ2018-165163

PATIENT
  Sex: Female
  Weight: 64.85 kg

DRUGS (3)
  1. AMLODIPINE [Concomitant]
     Active Substance: AMLODIPINE BESYLATE
  2. OPSUMIT [Suspect]
     Active Substance: MACITENTAN
     Indication: PULMONARY HYPERTENSION
     Dosage: 10 MG, QD
     Route: 048
  3. WARFARIN [Concomitant]
     Active Substance: WARFARIN

REACTIONS (7)
  - Pneumonia aspiration [Unknown]
  - Loss of consciousness [Unknown]
  - Pneumonia [Unknown]
  - Spinal compression fracture [Unknown]
  - Syncope [Unknown]
  - Rib fracture [Unknown]
  - Respiratory failure [Unknown]
